FAERS Safety Report 9183438 (Version 1)
Quarter: 2013Q1

REPORT INFORMATION
  Report Type: Spontaneous
  Country: US (occurrence: US)
  Receive Date: 20130322
  Receipt Date: 20130322
  Transmission Date: 20140127
  Serious: Yes (Disabling, Other)
  Sender: FDA-Public Use
  Company Number: US-PFIZER INC-2013093110

PATIENT
  Sex: 0

DRUGS (1)
  1. LYRICA [Suspect]
     Indication: HERPES ZOSTER
     Dosage: 75 MG (FREQUENCY UNKNOWN)

REACTIONS (5)
  - Loss of employment [Unknown]
  - Memory impairment [Unknown]
  - Nightmare [Unknown]
  - Swelling [Unknown]
  - Weight increased [Unknown]
